FAERS Safety Report 24454801 (Version 2)
Quarter: 2024Q4

REPORT INFORMATION
  Report Type: Spontaneous
  Country: BR (occurrence: BR)
  Receive Date: 20241017
  Receipt Date: 20241018
  Transmission Date: 20250114
  Serious: No
  Sender: ROCHE
  Company Number: BR-ROCHE-3471228

PATIENT
  Sex: Female

DRUGS (1)
  1. MABTHERA [Suspect]
     Active Substance: RITUXIMAB
     Indication: Rheumatoid arthritis
     Dosage: 1000ML IN THE FIRST 2 INFUSIONS AND AFTER 6 MONTHS ANOTHER 2 INFUSIONS IN THE SAME DOSAGE)?15-AUG-20
     Route: 041
     Dates: start: 20230802

REACTIONS (1)
  - Polymorphic light eruption [Unknown]
